FAERS Safety Report 20205135 (Version 1)
Quarter: 2021Q4

REPORT INFORMATION
  Report Type: Spontaneous
  Country: US (occurrence: None)
  Receive Date: 20211220
  Receipt Date: 20211220
  Transmission Date: 20220303
  Serious: No
  Sender: FDA-Public Use
  Company Number: US-MDD US Operations-SUP202107-001510

PATIENT
  Age: 34 Year
  Sex: Female

DRUGS (3)
  1. OXTELLAR XR [Suspect]
     Active Substance: OXCARBAZEPINE
     Indication: Seizure
     Dosage: 1200 MG
     Route: 048
     Dates: start: 2018
  2. LAMOTRIGINE [Concomitant]
     Active Substance: LAMOTRIGINE
     Dosage: 1 DF OF 400 MG
     Dates: start: 2007, end: 2008
  3. MODERNA COVID-19 VACCINE [Concomitant]
     Active Substance: ELASOMERAN
     Dosage: NOT PROVIDED

REACTIONS (1)
  - Seizure [Unknown]
